FAERS Safety Report 4502032-1 (Version None)
Quarter: 2004Q4

REPORT INFORMATION
  Report Type: 
  Country: None (occurrence: None)
  Receive Date: 20041115
  Receipt Date: 20041115
  Transmission Date: 20050328
  Serious: Yes (Hospitalization)
  Sender: FDA-Public Use
  Company Number: None

PATIENT
  Sex: Male

DRUGS (2)
  1. GEMCITABIME [Suspect]
     Indication: PANCREATIC CARCINOMA METASTATIC
     Dosage: 900 WEEKLY INTRAVENOU
     Route: 042
     Dates: start: 20040716, end: 20041104
  2. IRINOTECAN [Suspect]
     Indication: PANCREATIC CARCINOMA METASTATIC
     Dosage: 50 WEEKLY INTRAVENOU
     Route: 042
     Dates: start: 20040716, end: 20041104

REACTIONS (3)
  - CHOLECYSTITIS INFECTIVE [None]
  - HYPOKALAEMIA [None]
  - JAUNDICE [None]
